FAERS Safety Report 9538732 (Version 1)
Quarter: 2013Q3

REPORT INFORMATION
  Report Type: Report from Study
  Country: BR (occurrence: BR)
  Receive Date: 20130920
  Receipt Date: 20130920
  Transmission Date: 20140515
  Serious: Yes (Other)
  Sender: FDA-Public Use
  Company Number: PHHY2013BR103724

PATIENT
  Sex: Female
  Weight: 62 kg

DRUGS (4)
  1. ACLASTA [Suspect]
     Indication: OSTEOPOROSIS
     Dosage: UNK
     Route: 042
     Dates: start: 201204
  2. SIMVASTATIN [Concomitant]
     Dosage: UNK
     Dates: start: 2011
  3. CALTREN [Concomitant]
  4. CALCIUM D3 VIT [Concomitant]

REACTIONS (2)
  - Limb injury [Recovering/Resolving]
  - Bone fissure [Recovering/Resolving]
